FAERS Safety Report 26105705 (Version 2)
Quarter: 2025Q4

REPORT INFORMATION
  Report Type: Spontaneous
  Country: US (occurrence: US)
  Receive Date: 20251201
  Receipt Date: 20251226
  Transmission Date: 20260118
  Serious: Yes (Other)
  Sender: BRISTOL-MYERS SQUIBB COMPANY
  Company Number: US-BRISTOL-MYERS SQUIBB COMPANY-2025-160137

PATIENT
  Age: 70 Year
  Sex: Male

DRUGS (1)
  1. REVLIMID [Suspect]
     Active Substance: LENALIDOMIDE
     Indication: Plasma cell myeloma
     Dosage: DAILY FOR 21 DAYS, THEN 7 DAYS OFF
     Route: 048

REACTIONS (8)
  - Constipation [Unknown]
  - Diarrhoea [Unknown]
  - Product dose omission issue [Unknown]
  - Neuropathy peripheral [Unknown]
  - Neck pain [Unknown]
  - Fatigue [Unknown]
  - Dizziness [Unknown]
  - Heart rate irregular [Unknown]
